FAERS Safety Report 15227723 (Version 1)
Quarter: 2018Q3

REPORT INFORMATION
  Report Type: Spontaneous
  Country: JM (occurrence: JM)
  Receive Date: 20180801
  Receipt Date: 20180801
  Transmission Date: 20181010
  Serious: Yes (Life-Threatening, Other)
  Sender: FDA-Public Use
  Company Number: JM-MYLANLABS-2018M1056772

PATIENT
  Age: 60 Year
  Sex: Female

DRUGS (1)
  1. CARBOPLATIN. [Suspect]
     Active Substance: CARBOPLATIN
     Indication: LUNG ADENOCARCINOMA STAGE IV
     Route: 065

REACTIONS (6)
  - Blood creatinine increased [Unknown]
  - Generalised resistance to thyroid hormone [Unknown]
  - Hypomagnesaemia [Recovered/Resolved]
  - Electrocardiogram QT prolonged [Recovered/Resolved]
  - Hypocalcaemia [Recovered/Resolved]
  - Blood potassium decreased [Recovered/Resolved]
